FAERS Safety Report 5508559-8 (Version None)
Quarter: 2007Q4

REPORT INFORMATION
  Report Type: 
  Country: None (occurrence: None)
  Receive Date: 20071031
  Receipt Date: 20070716
  Transmission Date: 20080405
  Serious: No
  Sender: FDA-Public Use
  Company Number: 2007PV033135

PATIENT
  Age: 63 Year
  Sex: Female

DRUGS (4)
  1. SYMLIN [Suspect]
     Indication: GLUCOSE TOLERANCE IMPAIRED
     Dosage: 45MCG;TID;SC   30 MCG;TID;SC   15 MCG;TID;SC
     Route: 058
     Dates: start: 20070701
  2. SYMLIN [Suspect]
     Indication: GLUCOSE TOLERANCE IMPAIRED
     Dosage: 45MCG;TID;SC   30 MCG;TID;SC   15 MCG;TID;SC
     Route: 058
     Dates: start: 20070706
  3. SYMLIN [Suspect]
     Indication: GLUCOSE TOLERANCE IMPAIRED
     Dosage: 45MCG;TID;SC   30 MCG;TID;SC   15 MCG;TID;SC
     Route: 058
     Dates: start: 20070713
  4. NOVOLOG [Concomitant]

REACTIONS (4)
  - BLOOD GLUCOSE INCREASED [None]
  - DRUG INEFFECTIVE [None]
  - INJECTION SITE BRUISING [None]
  - INJECTION SITE PAIN [None]
